FAERS Safety Report 9365823 (Version 3)
Quarter: 2013Q3

REPORT INFORMATION
  Report Type: Spontaneous
  Country: US (occurrence: US)
  Receive Date: 20130625
  Receipt Date: 20130906
  Transmission Date: 20140515
  Serious: Yes (Other)
  Sender: FDA-Public Use
  Company Number: PHEH2013US013488

PATIENT
  Age: 34 Year
  Sex: Female

DRUGS (1)
  1. GILENYA [Suspect]
     Route: 048

REACTIONS (10)
  - Panic attack [Recovering/Resolving]
  - Skin discolouration [Unknown]
  - Dry skin [Unknown]
  - Dehydration [Unknown]
  - Fatigue [Unknown]
  - Anxiety [Recovering/Resolving]
  - Alopecia [Unknown]
  - Lymphocyte count decreased [Unknown]
  - Nasopharyngitis [Unknown]
  - Bronchitis [Unknown]
